FAERS Safety Report 11852636 (Version 4)
Quarter: 2016Q1

REPORT INFORMATION
  Report Type: Report from Study
  Country: DE (occurrence: DE)
  Receive Date: 20151218
  Receipt Date: 20160304
  Transmission Date: 20160526
  Serious: Yes (Hospitalization)
  Sender: FDA-Public Use
  Company Number: DE-PFIZER INC-2015434842

PATIENT
  Age: 64 Year
  Sex: Male
  Weight: 79 kg

DRUGS (8)
  1. COTRIM D.S. [Concomitant]
     Active Substance: SULFAMETHOXAZOLE\TRIMETHOPRIM
     Dosage: 960 MG, THREE TIMES WEEKLY
     Dates: start: 20141216
  2. RITUXIMAB [Concomitant]
     Active Substance: RITUXIMAB
     Dosage: 724 MG, UNK
     Dates: start: 20141218, end: 20141218
  3. PANTOZOL [Concomitant]
     Active Substance: PANTOPRAZOLE SODIUM
     Dosage: 40 MG, DAILY
     Dates: start: 20141218
  4. CISPLATIN. [Concomitant]
     Active Substance: CISPLATIN
     Dosage: 193 MG, UNK
     Dates: start: 20141219, end: 20141219
  5. TEMSIROLIMUS [Suspect]
     Active Substance: TEMSIROLIMUS
     Dosage: 25 MG/ INFUSION ON DAY 1 AND 8 OF EACH CYCLE
     Route: 041
     Dates: start: 20141217, end: 20141223
  6. AUGMENTAN /00756801/ [Concomitant]
     Active Substance: AMOXICILLIN\CLAVULANATE POTASSIUM
     Dosage: 875/125 MG
     Dates: start: 20141214
  7. DEXAMETHASONE. [Concomitant]
     Active Substance: DEXAMETHASONE
     Dosage: 40 MG, UNK
     Dates: start: 20141219, end: 20141222
  8. CYTARABIN [Concomitant]
     Active Substance: CYTARABINE
     Dosage: 8000 MG, UNK
     Dates: start: 20141220, end: 20141220

REACTIONS (1)
  - Febrile neutropenia [Recovered/Resolved]

NARRATIVE: CASE EVENT DATE: 20150114
